FAERS Safety Report 20360211 (Version 2)
Quarter: 2022Q1

REPORT INFORMATION
  Report Type: Spontaneous
  Country: US (occurrence: US)
  Receive Date: 20220121
  Receipt Date: 20220224
  Transmission Date: 20220423
  Serious: No
  Sender: FDA-Public Use
  Company Number: US-HETERO-HET2022US00102

PATIENT

DRUGS (1)
  1. RITONAVIR [Suspect]
     Active Substance: RITONAVIR
     Indication: COVID-19
     Dosage: 3 TABLETS IN THE MORNING AND IN THE EVENING
     Route: 048
     Dates: start: 20220106, end: 20220110

REACTIONS (3)
  - Dysgeusia [Unknown]
  - Nausea [Unknown]
  - Diarrhoea [Recovered/Resolved]

NARRATIVE: CASE EVENT DATE: 20220106
